FAERS Safety Report 8911569 (Version 3)
Quarter: 2012Q4

REPORT INFORMATION
  Report Type: 
  Country: US (occurrence: US)
  Receive Date: 20121116
  Receipt Date: 20121129
  Transmission Date: 20130627
  Serious: Yes (Death)
  Sender: FDA-Public Use
  Company Number: 2012SP003164

PATIENT
  Age: 55 Year
  Sex: Male
  Weight: 104 kg

DRUGS (7)
  1. LATUDA [Suspect]
     Indication: SCHIZOAFFECTIVE DISORDER
     Route: 048
     Dates: end: 20121030
  2. LATUDA [Suspect]
     Indication: SCHIZOAFFECTIVE DISORDER
     Route: 048
     Dates: start: 20121031, end: 20121102
  3. LATUDA [Suspect]
     Indication: SCHIZOAFFECTIVE DISORDER
     Route: 048
     Dates: start: 20121103
  4. LATUDA [Suspect]
     Indication: SCHIZOAFFECTIVE DISORDER
     Route: 048
     Dates: start: 20120502
  5. WELLBUTRIN [Concomitant]
     Indication: DEPRESSION
  6. REMERON [Concomitant]
     Indication: DEPRESSION
  7. HALDOL /00027401/ [Concomitant]
     Indication: PSYCHOTIC DISORDER
     Dates: start: 20121030

REACTIONS (2)
  - Death [Fatal]
  - Dizziness [Unknown]
